FAERS Safety Report 21854780 (Version 5)
Quarter: 2023Q4

REPORT INFORMATION
  Report Type: Report from Study
  Country: US (occurrence: US)
  Receive Date: 20230112
  Receipt Date: 20231103
  Transmission Date: 20240109
  Serious: Yes (Hospitalization, Other)
  Sender: FDA-Public Use
  Company Number: US-TAKEDA-2023TUS003850

PATIENT
  Age: 60 Year
  Sex: Male

DRUGS (3)
  1. VON WILLEBRAND FACTOR (RECOMBINANT) [Suspect]
     Active Substance: VON WILLEBRAND FACTOR (RECOMBINANT)
     Indication: Haemorrhage
     Dosage: 5100 INTERNATIONAL UNIT
     Route: 042
  2. VON WILLEBRAND FACTOR (RECOMBINANT) [Suspect]
     Active Substance: VON WILLEBRAND FACTOR (RECOMBINANT)
     Dosage: 5100 INTERNATIONAL UNIT
     Route: 065
  3. VON WILLEBRAND FACTOR (RECOMBINANT) [Suspect]
     Active Substance: VON WILLEBRAND FACTOR (RECOMBINANT)
     Dosage: 7000 DOSAGE FORM, 1/WEEK
     Route: 065

REACTIONS (4)
  - Haemorrhage [Unknown]
  - Mouth haemorrhage [Recovered/Resolved]
  - Dehydration [Unknown]
  - Poor venous access [Unknown]

NARRATIVE: CASE EVENT DATE: 20230721
